FAERS Safety Report 7321309-8 (Version None)
Quarter: 2011Q1

REPORT INFORMATION
  Report Type: 
  Country: None (occurrence: None)
  Receive Date: 20110228
  Receipt Date: 20100210
  Transmission Date: 20110831
  Serious: No
  Sender: FDA-Public Use
  Company Number: US-PFIZER INC-2010007326

PATIENT
  Sex: Male
  Weight: 83.914 kg

DRUGS (1)
  1. GEODON [Suspect]
     Indication: BIPOLAR DISORDER
     Dosage: 20 MG, 2X/DAY
     Route: 048

REACTIONS (3)
  - HYPERSENSITIVITY [None]
  - URTICARIA [None]
  - PRURITUS [None]
